FAERS Safety Report 11583492 (Version 1)
Quarter: 2015Q4

REPORT INFORMATION
  Report Type: Spontaneous
  Country: US (occurrence: US)
  Receive Date: 20151001
  Receipt Date: 20151001
  Transmission Date: 20160304
  Serious: No
  Sender: FDA-Public Use
  Company Number: US-BAUSCH-BL-2015-015482

PATIENT
  Sex: Male
  Weight: 92.16 kg

DRUGS (16)
  1. BACLOFEN. [Concomitant]
     Active Substance: BACLOFEN
     Indication: MUSCLE SPASMS
     Route: 048
  2. BACLOFEN. [Concomitant]
     Active Substance: BACLOFEN
     Indication: THROMBOSIS
  3. ZETIA [Concomitant]
     Active Substance: EZETIMIBE
     Indication: BLOOD CHOLESTEROL INCREASED
     Route: 048
  4. ZETIA [Concomitant]
     Active Substance: EZETIMIBE
     Indication: THROMBOSIS
  5. BACLOFEN. [Concomitant]
     Active Substance: BACLOFEN
     Indication: THROMBOSIS
  6. COUMADIN [Concomitant]
     Active Substance: WARFARIN SODIUM
     Indication: THROMBOSIS
     Route: 048
  7. JUBLIA [Suspect]
     Active Substance: EFINACONAZOLE
     Indication: FUNGAL INFECTION
     Route: 061
     Dates: start: 201501, end: 2015
  8. VITAMIN D [Concomitant]
     Active Substance: CHOLECALCIFEROL
     Indication: THROMBOSIS
  9. METOPROLOL [Concomitant]
     Active Substance: METOPROLOL
     Indication: HYPERTENSION
     Route: 048
  10. COUMADIN [Concomitant]
     Active Substance: WARFARIN SODIUM
     Indication: THROMBOSIS
  11. COUMADIN [Concomitant]
     Active Substance: WARFARIN SODIUM
     Indication: THROMBOSIS
  12. VITAMIN D [Concomitant]
     Active Substance: CHOLECALCIFEROL
     Indication: PRODUCT USED FOR UNKNOWN INDICATION
     Route: 048
  13. VITAMIN D [Concomitant]
     Active Substance: CHOLECALCIFEROL
     Indication: THROMBOSIS
  14. METOPROLOL [Concomitant]
     Active Substance: METOPROLOL
     Indication: THROMBOSIS
  15. METOPROLOL [Concomitant]
     Active Substance: METOPROLOL
     Indication: THROMBOSIS
  16. ZETIA [Concomitant]
     Active Substance: EZETIMIBE
     Indication: THROMBOSIS

REACTIONS (2)
  - Onychomadesis [Not Recovered/Not Resolved]
  - Drug ineffective [Not Recovered/Not Resolved]

NARRATIVE: CASE EVENT DATE: 2015
